FAERS Safety Report 23407884 (Version 1)
Quarter: 2024Q1

REPORT INFORMATION
  Report Type: Spontaneous
  Country: IQ (occurrence: IQ)
  Receive Date: 20240117
  Receipt Date: 20240117
  Transmission Date: 20240410
  Serious: Yes (Death, Other)
  Sender: FDA-Public Use
  Company Number: IQ-SA-SAC20240115000946

PATIENT
  Sex: Male
  Weight: 4 kg

DRUGS (1)
  1. MYOZYME [Suspect]
     Active Substance: ALGLUCOSIDASE ALFA
     Indication: Glycogen storage disease type II
     Dosage: 200 MG/KG
     Route: 042
     Dates: start: 20230601, end: 20231207

REACTIONS (7)
  - Glycogen storage disease type II [Fatal]
  - Respiratory failure [Unknown]
  - Failure to thrive [Unknown]
  - Cardiomegaly [Unknown]
  - Muscular weakness [Unknown]
  - Diastolic dysfunction [Unknown]
  - Fatigue [Unknown]

NARRATIVE: CASE EVENT DATE: 20230101
